FAERS Safety Report 7921200-X (Version None)
Quarter: 2011Q4

REPORT INFORMATION
  Report Type: 
  Country: None (occurrence: None)
  Receive Date: 20111117
  Receipt Date: 20111107
  Transmission Date: 20120403
  Serious: Yes (Life-Threatening, Hospitalization, Other)
  Sender: FDA-Public Use
  Company Number: US-BAYER-2011-061225

PATIENT
  Age: 31 Year
  Sex: Female
  Weight: 72.562 kg

DRUGS (11)
  1. DROSPIRENONE AND ETHINYL ESTRADIOL [Suspect]
     Indication: CONTRACEPTION
     Dosage: UNK
     Dates: start: 20070831
  2. IMITREX [Concomitant]
     Indication: MIGRAINE
     Dosage: UNK UNK, PRN
  3. YASMIN [Suspect]
     Dosage: UNK
     Dates: start: 20061201, end: 20080501
  4. DROSPIRENONE AND ETHINYL ESTRADIOL [Suspect]
     Indication: MENSTRUAL CYCLE MANAGEMENT
     Dosage: UNK
     Dates: start: 20080227
  5. DROSPIRENONE AND ETHINYL ESTRADIOL [Suspect]
     Dosage: UNK
     Dates: start: 20080701
  6. OXYCODONE HCL AND ACETAMINOPHEN [Concomitant]
     Dosage: 1 DF, QID
     Route: 048
  7. YASMIN [Suspect]
     Dosage: UNK
     Dates: start: 20040401, end: 20040701
  8. YASMIN [Suspect]
     Dosage: UNK
     Dates: start: 20030201, end: 20031201
  9. YASMIN [Suspect]
     Indication: CONTRACEPTION
     Dosage: UNK
     Dates: start: 20011101
  10. YASMIN [Suspect]
     Indication: MENSTRUAL CYCLE MANAGEMENT
     Dosage: UNK
     Dates: start: 20020101, end: 20021101
  11. PROPOXYPHENE HYDROCHLORIDE [Concomitant]
     Route: 048

REACTIONS (9)
  - INJURY [None]
  - ANHEDONIA [None]
  - PAIN [None]
  - CHOLELITHIASIS [None]
  - CHOLECYSTITIS ACUTE [None]
  - ABDOMINAL PAIN [None]
  - ANXIETY [None]
  - EMOTIONAL DISTRESS [None]
  - FEAR OF DISEASE [None]
